FAERS Safety Report 14054671 (Version 1)
Quarter: 2017Q4

REPORT INFORMATION
  Report Type: Spontaneous
  Country: US (occurrence: US)
  Receive Date: 20171006
  Receipt Date: 20171006
  Transmission Date: 20180321
  Serious: No
  Sender: FDA-Public Use
  Company Number: US-JNJFOC-20170715586

PATIENT
  Age: 70 Year
  Sex: Female
  Weight: 54.43 kg

DRUGS (6)
  1. MENS ROGAINE [Suspect]
     Active Substance: MINOXIDIL
     Route: 061
  2. FLUOXETINE [Concomitant]
     Active Substance: FLUOXETINE HYDROCHLORIDE
     Indication: ANXIETY
     Dosage: LONG TIME
     Route: 065
  3. LEVOTHYROXINE. [Concomitant]
     Active Substance: LEVOTHYROXINE
     Indication: HYPOTHYROIDISM
     Dosage: LONG TIME
     Route: 065
  4. MENS ROGAINE [Suspect]
     Active Substance: MINOXIDIL
     Indication: ALOPECIA
     Route: 061
     Dates: end: 20170709
  5. HYDROXYZINE [Concomitant]
     Active Substance: HYDROXYZINE HYDROCHLORIDE
     Indication: SLEEP DISORDER
     Dosage: 4-6 WEEKS
     Route: 065
  6. CALCIUM MAGNESIUM CITRATE [Concomitant]
     Indication: SLEEP DISORDER THERAPY
     Dosage: 1 TABLESPOON AMOUNT ONCE PER NIGHT
     Route: 065

REACTIONS (4)
  - Off label use [Recovered/Resolved]
  - Skin exfoliation [Recovered/Resolved]
  - Product use issue [Recovered/Resolved]
  - Pruritus [Recovered/Resolved]
